FAERS Safety Report 8387436-1 (Version None)
Quarter: 2012Q2

REPORT INFORMATION
  Report Type: 
  Country: None (occurrence: None)
  Receive Date: 20120525
  Receipt Date: 20120521
  Transmission Date: 20120825
  Serious: Yes (Other)
  Sender: FDA-Public Use
  Company Number: US-CUBIST-2012S1000451

PATIENT
  Sex: Female

DRUGS (1)
  1. CUBICIN [Suspect]
     Indication: CELLULITIS
     Dosage: DOSE UNIT:U
     Route: 042
     Dates: start: 20120518, end: 20120521

REACTIONS (1)
  - EMBOLISM [None]
